FAERS Safety Report 24252288 (Version 1)
Quarter: 2024Q3

REPORT INFORMATION
  Report Type: Report from Study
  Country: US (occurrence: US)
  Receive Date: 20240827
  Receipt Date: 20240827
  Transmission Date: 20241016
  Serious: Yes (Other)
  Sender: ABBVIE
  Company Number: US-ABBVIE-5891363

PATIENT
  Sex: Female

DRUGS (1)
  1. SKYRIZI [Suspect]
     Active Substance: RISANKIZUMAB-RZAA
     Indication: Psoriasis
     Route: 058
     Dates: start: 20231110, end: 202402

REACTIONS (4)
  - Hip surgery [Unknown]
  - Weight increased [Unknown]
  - Weight decreased [Unknown]
  - Knee operation [Unknown]

NARRATIVE: CASE EVENT DATE: 20230101
